FAERS Safety Report 8801993 (Version 2)
Quarter: 2012Q4

REPORT INFORMATION
  Report Type: 
  Country: AU (occurrence: AU)
  Receive Date: 20120921
  Receipt Date: 20121003
  Transmission Date: 20130627
  Serious: Yes (Other)
  Sender: FDA-Public Use
  Company Number: PHHY2012AU081756

PATIENT
  Sex: Male

DRUGS (1)
  1. CICLOSPORIN [Suspect]

REACTIONS (4)
  - Multiple sclerosis [Unknown]
  - Chronic graft versus host disease [Unknown]
  - H1N1 influenza [Unknown]
  - No therapeutic response [Unknown]
